FAERS Safety Report 8481463-1 (Version None)
Quarter: 2012Q3

REPORT INFORMATION
  Report Type: 
  Country: None (occurrence: None)
  Receive Date: 20120702
  Receipt Date: 20120620
  Transmission Date: 20120928
  Serious: Yes (Other)
  Sender: FDA-Public Use
  Company Number: IT-JNJFOC-20120614247

PATIENT
  Age: 61 Year
  Sex: Male

DRUGS (3)
  1. CHEMOTHERAPEUTICS NOS [Concomitant]
     Indication: COLON CANCER
     Route: 065
     Dates: start: 20110101, end: 20120401
  2. PALEXIA [Suspect]
     Indication: MUSCULOSKELETAL PAIN
     Dosage: 100 MG
     Route: 048
     Dates: start: 20120601, end: 20120608
  3. PIROXICAM [Suspect]
     Indication: MUSCULOSKELETAL PAIN
     Route: 062
     Dates: start: 20120601, end: 20120608

REACTIONS (8)
  - CONSTIPATION [None]
  - ASTHENIA [None]
  - DRUG INEFFECTIVE [None]
  - VOMITING [None]
  - MELAENA [None]
  - DYSURIA [None]
  - DYSGEUSIA [None]
  - DRY MOUTH [None]
